FAERS Safety Report 20045101 (Version 1)
Quarter: 2021Q4

REPORT INFORMATION
  Report Type: Spontaneous
  Country: CA (occurrence: CA)
  Receive Date: 20211108
  Receipt Date: 20211108
  Transmission Date: 20220303
  Serious: Yes (Hospitalization)
  Sender: FDA-Public Use
  Company Number: CA-TEVA-2021-CA-1973842

PATIENT
  Age: 90 Year
  Sex: Male

DRUGS (4)
  1. HYDROMORPHONE [Suspect]
     Active Substance: HYDROMORPHONE
     Route: 065
  2. TRAZODONE [Suspect]
     Active Substance: TRAZODONE HYDROCHLORIDE
     Route: 065
  3. IBUPROFEN [Concomitant]
     Active Substance: IBUPROFEN
  4. TINZAPARIN [Concomitant]
     Active Substance: TINZAPARIN

REACTIONS (4)
  - Acute kidney injury [Unknown]
  - Anaemia [Unknown]
  - Confusional state [Unknown]
  - Muscular weakness [Unknown]
